FAERS Safety Report 22370000 (Version 4)
Quarter: 2024Q1

REPORT INFORMATION
  Report Type: Report from Study
  Country: US (occurrence: US)
  Receive Date: 20230526
  Receipt Date: 20240315
  Transmission Date: 20240410
  Serious: Yes (Hospitalization)
  Sender: FDA-Public Use
  Company Number: US-ABBVIE-5179986

PATIENT
  Age: 67 Year
  Sex: Female
  Weight: 78.471 kg

DRUGS (6)
  1. SKYRIZI [Suspect]
     Active Substance: RISANKIZUMAB-RZAA
     Indication: Psoriatic arthropathy
     Dosage: FORM STRENGTH: 150 MILLIGRAM,?WEEK 0
     Route: 058
     Dates: start: 20220521, end: 20220521
  2. SKYRIZI [Suspect]
     Active Substance: RISANKIZUMAB-RZAA
     Dosage: FORM STRENGTH: 150 MILLIGRAM,?WEEK 4
     Route: 058
     Dates: start: 20220618, end: 20220618
  3. SKYRIZI [Suspect]
     Active Substance: RISANKIZUMAB-RZAA
     Dosage: FORM STRENGTH: 150 MILLIGRAM
     Route: 058
     Dates: start: 20220916
  4. FAMOTIDINE [Concomitant]
     Active Substance: FAMOTIDINE
     Indication: Oesophagitis chemical
     Dosage: FORM STRENGTH: 40 MILLIGRAM
  5. LEVOTHYROXINE [Concomitant]
     Active Substance: LEVOTHYROXINE\LEVOTHYROXINE SODIUM
     Indication: Hypothyroidism
     Dosage: FORM STRENGTH: 112 MICROGRAM
  6. PANTOPRAZOLE [Concomitant]
     Active Substance: PANTOPRAZOLE
     Indication: Oesophagitis chemical
     Dosage: FORM STRENGTH: 40 MILLIGRAM

REACTIONS (14)
  - Cellulitis [Recovered/Resolved]
  - Fall [Recovered/Resolved]
  - Arthritis infective [Unknown]
  - Erythema [Recovered/Resolved]
  - Fatigue [Recovered/Resolved with Sequelae]
  - Purulent discharge [Unknown]
  - Eye contusion [Recovered/Resolved]
  - Injection site pruritus [Not Recovered/Not Resolved]
  - Injection site erythema [Not Recovered/Not Resolved]
  - Pyrexia [Recovered/Resolved]
  - Psoriatic arthropathy [Not Recovered/Not Resolved]
  - Secretion discharge [Not Recovered/Not Resolved]
  - Arthralgia [Recovered/Resolved with Sequelae]
  - Purulent discharge [Recovered/Resolved]

NARRATIVE: CASE EVENT DATE: 20220521
